FAERS Safety Report 23940196 (Version 1)
Quarter: 2024Q2

REPORT INFORMATION
  Report Type: Spontaneous
  Country: IT (occurrence: IT)
  Receive Date: 20240605
  Receipt Date: 20240605
  Transmission Date: 20240716
  Serious: Yes (Hospitalization)
  Sender: FDA-Public Use
  Company Number: IT-EMA-DD-20240523-7482701-095530

PATIENT
  Age: 7 Year
  Sex: Male

DRUGS (1)
  1. RISPERIDONE [Suspect]
     Active Substance: RISPERIDONE
     Indication: Product used for unknown indication
     Dosage: 2.5 MILLIGRAM, ONCE ( 2.5 MG (ONE ADMINISTRATION)
     Route: 048

REACTIONS (3)
  - Confusional state [Recovered/Resolved]
  - Bradykinesia [Recovered/Resolved]
  - Accidental overdose [Unknown]
